FAERS Safety Report 24554135 (Version 1)
Quarter: 2024Q4

REPORT INFORMATION
  Report Type: Report from Study
  Country: US (occurrence: US)
  Receive Date: 20241028
  Receipt Date: 20241028
  Transmission Date: 20250115
  Serious: Yes (Death)
  Sender: INSMED
  Company Number: US-INSMED, INC.-2022-01452-US

PATIENT
  Age: 82 Year
  Sex: Female
  Weight: 52.154 kg

DRUGS (2)
  1. ARIKAYCE [Suspect]
     Active Substance: AMIKACIN
     Indication: Mycobacterial infection
     Dosage: 590 MILLIGRAM, QD
     Route: 055
     Dates: start: 202111, end: 2022
  2. ARIKAYCE [Suspect]
     Active Substance: AMIKACIN
     Dosage: 590 MILLIGRAM, QD
     Route: 055
     Dates: start: 20240328, end: 2024

REACTIONS (10)
  - Death [Fatal]
  - Eating disorder [Unknown]
  - Heart rate abnormal [Unknown]
  - Hypertension [Unknown]
  - Somnolence [Unknown]
  - Weight decreased [Unknown]
  - Fatigue [Unknown]
  - Nonspecific reaction [Not Recovered/Not Resolved]
  - Insurance issue [Unknown]
  - Therapy interrupted [Unknown]

NARRATIVE: CASE EVENT DATE: 20241011
